FAERS Safety Report 5142788-0 (Version None)
Quarter: 2006Q4

REPORT INFORMATION
  Report Type: 
  Country: None (occurrence: None)
  Receive Date: 20061027
  Receipt Date: 20061009
  Transmission Date: 20070319
  Serious: Yes (Hospitalization)
  Sender: FDA-Public Use
  Company Number: US_0407104108

PATIENT
  Age: 72 Year
  Sex: Male
  Weight: 86.4 kg

DRUGS (12)
  1. PEMETREXED (PEMETREXED) VIAL [Suspect]
     Indication: MESOTHELIOMA
     Dosage: 1000 MG, OTHER, INTRAVENOUS
     Route: 042
     Dates: start: 20031218, end: 20040108
  2. GEMCITABINE [Suspect]
     Indication: MESOTHELIOMA
     Dosage: 2500 MG, INTRAVENOUS
     Route: 042
     Dates: start: 20031218, end: 20040108
  3. VITAMIN B12 [Concomitant]
  4. FOLIC ACID [Concomitant]
  5. VITAMIN C (VITAMIN C) [Concomitant]
  6. VITAMIN E [Concomitant]
  7. VITAMIN B COMPLEX CAP [Concomitant]
  8. FLOMAX (MORNIFLUMATE) [Concomitant]
  9. RITALIN [Concomitant]
  10. AMBIEN [Concomitant]
  11. DEXAMETHASONE TAB [Concomitant]
  12. KYTRIL [Concomitant]

REACTIONS (7)
  - HAEMOGLOBIN DECREASED [None]
  - PLATELET COUNT INCREASED [None]
  - PYREXIA [None]
  - RASH MACULO-PAPULAR [None]
  - SINUSITIS [None]
  - UPPER RESPIRATORY TRACT INFECTION [None]
  - WHITE BLOOD CELL COUNT DECREASED [None]
